FAERS Safety Report 13655030 (Version 2)
Quarter: 2017Q2

REPORT INFORMATION
  Report Type: Report from Study
  Country: MX (occurrence: MX)
  Receive Date: 20170615
  Receipt Date: 20170620
  Transmission Date: 20170830
  Serious: Yes (Hospitalization, Other)
  Sender: FDA-Public Use
  Company Number: MX-UCBSA-2017022693

PATIENT
  Age: 3 Month
  Sex: Male
  Weight: 7 kg

DRUGS (4)
  1. LEVETIRACETAM. [Suspect]
     Active Substance: LEVETIRACETAM
     Indication: SEIZURE
     Dosage: 0.5 ML, 2X/DAY (BID)
     Route: 048
     Dates: start: 20170513, end: 201705
  2. LEVETIRACETAM. [Suspect]
     Active Substance: LEVETIRACETAM
     Dosage: 1 ML, 2X/DAY (BID)
     Route: 048
     Dates: start: 20170518, end: 201706
  3. LEVETIRACETAM. [Suspect]
     Active Substance: LEVETIRACETAM
     Dosage: 1.5 ML, 2X/DAY (BID)
     Route: 048
     Dates: start: 20170606
  4. CEFUROXIMA [Concomitant]
     Indication: PNEUMONIA
     Dosage: UNK
     Route: 042
     Dates: start: 20170529, end: 20170608

REACTIONS (5)
  - Change in seizure presentation [Unknown]
  - Nystagmus [Not Recovered/Not Resolved]
  - Pneumonia [Recovered/Resolved]
  - Seizure [Recovered/Resolved]
  - Off label use [Unknown]

NARRATIVE: CASE EVENT DATE: 20170513
